FAERS Safety Report 20175740 (Version 1)
Quarter: 2021Q4

REPORT INFORMATION
  Report Type: Spontaneous
  Country: US (occurrence: US)
  Receive Date: 20211213
  Receipt Date: 20211213
  Transmission Date: 20220304
  Serious: Yes (Hospitalization)
  Sender: FDA-Public Use
  Company Number: US-MYLANLABS-2021M1091446

PATIENT
  Age: 46 Year
  Sex: Male

DRUGS (1)
  1. WARFARIN [Suspect]
     Active Substance: WARFARIN
     Indication: Venous thrombosis
     Dosage: UNK
     Route: 065

REACTIONS (2)
  - Haemorrhagic cholecystitis [Recovered/Resolved]
  - Normochromic normocytic anaemia [Recovering/Resolving]
